FAERS Safety Report 11486645 (Version 2)
Quarter: 2015Q3

REPORT INFORMATION
  Report Type: Spontaneous
  Country: US (occurrence: US)
  Receive Date: 20150910
  Receipt Date: 20150924
  Transmission Date: 20151125
  Serious: No
  Sender: FDA-Public Use
  Company Number: US-PFIZER INC-2015290270

PATIENT
  Age: 62 Year
  Sex: Female

DRUGS (5)
  1. LYRICA [Suspect]
     Active Substance: PREGABALIN
     Indication: PAIN IN EXTREMITY
     Dosage: 100 MG, 3X/DAY
     Dates: end: 20150810
  2. CITALOPRAM [Concomitant]
     Active Substance: CITALOPRAM HYDROBROMIDE
     Dosage: 2 OF 20 (NO UNIT PROVIDED)
  3. METFORMIN [Concomitant]
     Active Substance: METFORMIN HYDROCHLORIDE
     Dosage: 2 OF 500 (NO UNIT PROVIDED)
  4. TRAMADOL. [Concomitant]
     Active Substance: TRAMADOL
     Dosage: 6 OF 50 (NO UNIT PROVIDED)
  5. SIMVASTATIN. [Concomitant]
     Active Substance: SIMVASTATIN
     Dosage: 1 OF 40 (NO UNIT PROVIDED)

REACTIONS (1)
  - Discomfort [Unknown]

NARRATIVE: CASE EVENT DATE: 2015
